FAERS Safety Report 13230410 (Version 5)
Quarter: 2018Q1

REPORT INFORMATION
  Report Type: Spontaneous
  Country: US (occurrence: US)
  Receive Date: 20170214
  Receipt Date: 20180323
  Transmission Date: 20180508
  Serious: Yes (Other)
  Sender: FDA-Public Use
  Company Number: US-TEVA-717308USA

PATIENT
  Sex: Female

DRUGS (9)
  1. GLUCOSAMINE CHONDROITIN [Concomitant]
     Active Substance: CHONDROITIN SULFATE (BOVINE)\GLUCOSAMINE HYDROCHLORIDE
  2. TEGRETOL [Concomitant]
     Active Substance: CARBAMAZEPINE
  3. FOLIC ACID. [Concomitant]
     Active Substance: FOLIC ACID
  4. COD LIVER OIL [Concomitant]
     Active Substance: COD LIVER OIL
  5. HAWTHORN [Concomitant]
     Active Substance: CRATAEGUS LAEVIGATA FRUIT
  6. GABA MAGNESIUM POWDER MALATE [Concomitant]
  7. COPAXONE [Suspect]
     Active Substance: GLATIRAMER ACETATE
     Indication: MULTIPLE SCLEROSIS
     Dosage: 20 MILLIGRAM DAILY; PREFILLED SYRINGE
     Route: 058
     Dates: start: 20140523
  8. CINNAMON. [Concomitant]
     Active Substance: CINNAMON
  9. VITAMIN D3 [Concomitant]
     Active Substance: CHOLECALCIFEROL

REACTIONS (13)
  - Stress [Not Recovered/Not Resolved]
  - Drug ineffective [Unknown]
  - Depression [Not Recovered/Not Resolved]
  - Drug dose omission [Unknown]
  - Arthralgia [Not Recovered/Not Resolved]
  - Fatigue [Not Recovered/Not Resolved]
  - Demyelination [Not Recovered/Not Resolved]
  - Walking aid user [Unknown]
  - Injection site erythema [Not Recovered/Not Resolved]
  - Multiple sclerosis relapse [Not Recovered/Not Resolved]
  - Back pain [Not Recovered/Not Resolved]
  - Pain in extremity [Not Recovered/Not Resolved]
  - Motor dysfunction [Not Recovered/Not Resolved]

NARRATIVE: CASE EVENT DATE: 2016
